FAERS Safety Report 10660641 (Version 3)
Quarter: 2015Q1

REPORT INFORMATION
  Report Type: Spontaneous
  Country: US (occurrence: US)
  Receive Date: 20141217
  Receipt Date: 20150108
  Transmission Date: 20150720
  Serious: Yes (Other)
  Sender: FDA-Public Use
  Company Number: US-GLAXOSMITHKLINE-A1088721A

PATIENT

DRUGS (1)
  1. VOTRIENT [Suspect]
     Active Substance: PAZOPANIB HYDROCHLORIDE
     Indication: BONE CANCER
     Dosage: 800 MG, QD
     Route: 065
     Dates: start: 20140813

REACTIONS (4)
  - Hypertension [Unknown]
  - Throat irritation [Unknown]
  - Brain neoplasm [Unknown]
  - Dysphonia [Unknown]

NARRATIVE: CASE EVENT DATE: 2014
